FAERS Safety Report 16081097 (Version 1)
Quarter: 2019Q1

REPORT INFORMATION
  Report Type: Spontaneous
  Country: US (occurrence: US)
  Receive Date: 20190316
  Receipt Date: 20190316
  Transmission Date: 20190418
  Serious: No
  Sender: FDA-Public Use
  Company Number: US-TEVA-2019-US-1016835

PATIENT
  Age: 66 Year
  Sex: Female

DRUGS (3)
  1. ESTRADIOL TEVA [Suspect]
     Active Substance: ESTRADIOL
     Route: 048
  2. ESTRADIOL TEVA [Suspect]
     Active Substance: ESTRADIOL
     Indication: HORMONE LEVEL ABNORMAL
     Dosage: EVERY OTHER DAY
     Route: 048
  3. ESTRADIOL TEVA [Suspect]
     Active Substance: ESTRADIOL
     Route: 048

REACTIONS (8)
  - Thinking abnormal [Not Recovered/Not Resolved]
  - Breast tenderness [Recovered/Resolved]
  - Vertigo [Unknown]
  - Feeling abnormal [Not Recovered/Not Resolved]
  - Balance disorder [Recovering/Resolving]
  - Breast pain [Unknown]
  - Dizziness [Recovering/Resolving]
  - Vertigo positional [Unknown]

NARRATIVE: CASE EVENT DATE: 2018
